FAERS Safety Report 13760170 (Version 2)
Quarter: 2017Q3

REPORT INFORMATION
  Report Type: Report from Study
  Country: US (occurrence: US)
  Receive Date: 20170717
  Receipt Date: 20170804
  Transmission Date: 20171127
  Serious: No
  Sender: FDA-Public Use
  Company Number: GXBR2017US002181

PATIENT
  Sex: Female
  Weight: 63.49 kg

DRUGS (1)
  1. GLATOPA [Suspect]
     Active Substance: GLATIRAMER ACETATE
     Indication: MULTIPLE SCLEROSIS
     Dosage: 20 MG, QD, ROTATE INJECTION SITES
     Route: 058
     Dates: start: 20170701

REACTIONS (7)
  - Piloerection [Recovered/Resolved]
  - Injection site erythema [Not Recovered/Not Resolved]
  - Injection site pruritus [Not Recovered/Not Resolved]
  - Injection site mass [Not Recovered/Not Resolved]
  - Chills [Recovered/Resolved]
  - Hot flush [Recovering/Resolving]
  - Pyrexia [Recovering/Resolving]
